FAERS Safety Report 7735343-7 (Version None)
Quarter: 2011Q3

REPORT INFORMATION
  Report Type: 
  Country: None (occurrence: None)
  Receive Date: 20110907
  Receipt Date: 20110902
  Transmission Date: 20111222
  Serious: Yes (Hospitalization)
  Sender: FDA-Public Use
  Company Number: US-CEPHALON-2011004638

PATIENT
  Sex: Male
  Weight: 88 kg

DRUGS (6)
  1. PRILOSEC [Concomitant]
     Dates: start: 20110325
  2. BENDAMUSTINE HCL [Suspect]
     Indication: NON-HODGKIN'S LYMPHOMA
     Route: 041
     Dates: start: 20110315
  3. VICODIN [Concomitant]
     Dates: start: 20110216
  4. ZYRTEC [Concomitant]
     Dates: start: 20110801
  5. RITUXAN [Suspect]
     Indication: NON-HODGKIN'S LYMPHOMA
     Route: 042
     Dates: start: 20110315
  6. BENTYL [Concomitant]
     Dates: start: 20110216

REACTIONS (1)
  - SMALL INTESTINAL OBSTRUCTION [None]
